FAERS Safety Report 25092698 (Version 2)
Quarter: 2025Q1

REPORT INFORMATION
  Report Type: Report from Study
  Country: MX (occurrence: MX)
  Receive Date: 20250319
  Receipt Date: 20250327
  Transmission Date: 20250408
  Serious: Yes (Other)
  Sender: ALEXION PHARMACEUTICALS
  Company Number: MX-AstraZeneca-CH-00817063A

PATIENT
  Age: 77 Year
  Weight: 52 kg

DRUGS (5)
  1. BUDESONIDE\FORMOTEROL\GLYCOPYRRONIUM [Suspect]
     Active Substance: BUDESONIDE\FORMOTEROL\GLYCOPYRRONIUM
     Indication: Pulmonary fibrosis
     Dosage: 2 DOSAGE FORM, Q12H, 160/7.5/5 MCG
  2. Kitoscell lp [Concomitant]
     Indication: Hepatic cirrhosis
     Dosage: 0.5 DOSAGE FORM, QD
  3. OXYGEN [Concomitant]
     Active Substance: OXYGEN
  4. SPIRIVA [Concomitant]
     Active Substance: TIOTROPIUM BROMIDE MONOHYDRATE
  5. Kisika [Concomitant]
     Dosage: .5 DOSAGE FORM, QD

REACTIONS (5)
  - Hepatic failure [Unknown]
  - Hepatic cirrhosis [Unknown]
  - Multiple sclerosis [Unknown]
  - Cough [Recovering/Resolving]
  - Off label use [Unknown]
